FAERS Safety Report 21136153 (Version 1)
Quarter: 2022Q3

REPORT INFORMATION
  Report Type: Spontaneous
  Country: GB (occurrence: None)
  Receive Date: 20220727
  Receipt Date: 20220727
  Transmission Date: 20221026
  Serious: Yes (Other)
  Sender: FDA-Public Use
  Company Number: GB-MHRA-MED-202205221418185680-2AX7W

PATIENT
  Age: 60 Year
  Sex: Male
  Weight: 90 kg

DRUGS (2)
  1. ATORVASTATIN [Suspect]
     Active Substance: ATORVASTATIN
     Indication: Blood cholesterol increased
     Dosage: 40 MG AT NIGHT; ;
     Dates: start: 20220421
  2. MONTELUKAST. [Concomitant]
     Indication: Asthma
     Dates: start: 20120501

REACTIONS (1)
  - Arrhythmia [Not Recovered/Not Resolved]

NARRATIVE: CASE EVENT DATE: 20220512
